FAERS Safety Report 4973605-7 (Version None)
Quarter: 2006Q2

REPORT INFORMATION
  Report Type: 
  Country: None (occurrence: None)
  Receive Date: 20060413
  Receipt Date: 20060413
  Transmission Date: 20061013
  Serious: Yes (Other)
  Sender: FDA-Public Use
  Company Number: None

PATIENT
  Age: 46 Year
  Sex: Male

DRUGS (1)
  1. LEVITRA [Suspect]
     Indication: ERECTILE DYSFUNCTION
     Dosage: ORAL;20.0 MILLIGRAM
     Route: 048
     Dates: start: 20051102, end: 20060203

REACTIONS (2)
  - DRUG THERAPY CHANGED [None]
  - HEADACHE [None]
